FAERS Safety Report 7133494-1 (Version None)
Quarter: 2010Q4

REPORT INFORMATION
  Report Type: 
  Country: None (occurrence: None)
  Receive Date: 20101202
  Receipt Date: 20101201
  Transmission Date: 20110411
  Serious: Yes (Life-Threatening, Hospitalization)
  Sender: FDA-Public Use
  Company Number: GB-PFIZER INC-2010162248

PATIENT
  Age: 60 Year
  Sex: Female
  Weight: 70 kg

DRUGS (9)
  1. CHAMPIX [Suspect]
     Indication: SMOKING CESSATION THERAPY
     Dosage: 1 MG, 2X/DAY
     Route: 048
     Dates: start: 20101018, end: 20101121
  2. AMITRIPTYLINE [Concomitant]
     Dosage: 10 MG, 1X/DAY
  3. AMLODIPINE [Concomitant]
     Dosage: 10 MG, 1X/DAY
  4. BENDROFLUMETHIAZIDE [Concomitant]
     Dosage: 2.5 MG, 1X/DAY
  5. CITALOPRAM [Concomitant]
     Dosage: 40 MG, 1X/DAY
  6. NUELIN SA [Concomitant]
     Dosage: 250 MG, 2X/DAY
  7. SALBUTAMOL [Concomitant]
     Dosage: 2 DF, AS NEEDED
     Route: 055
  8. SERETIDE [Concomitant]
     Dosage: 2 DF, 2X/DAY
     Route: 055
  9. SIMVASTATIN [Concomitant]
     Dosage: 40 MG, 1X/DAY

REACTIONS (3)
  - DYSTONIA [None]
  - SOMNOLENCE [None]
  - STUPOR [None]
